FAERS Safety Report 8853046 (Version 1)
Quarter: 2012Q4

REPORT INFORMATION
  Report Type: 
  Country: CA (occurrence: CA)
  Receive Date: 20121022
  Receipt Date: 20121022
  Transmission Date: 20130627
  Serious: Yes (Life-Threatening, Other)
  Sender: FDA-Public Use
  Company Number: CA-ASTRAZENECA-2012SE79890

PATIENT
  Age: 60 Year
  Sex: Female
  Weight: 68 kg

DRUGS (2)
  1. BRILINTA [Suspect]
     Route: 048
  2. BISOPROLOL [Concomitant]

REACTIONS (2)
  - Sinus bradycardia [Recovered/Resolved]
  - Dizziness [Recovered/Resolved]
